FAERS Safety Report 16531133 (Version 1)
Quarter: 2019Q3

REPORT INFORMATION
  Report Type: Spontaneous
  Country: US (occurrence: US)
  Receive Date: 20190704
  Receipt Date: 20190704
  Transmission Date: 20191004
  Serious: No
  Sender: FDA-Public Use
  Company Number: US-DRREDDYS-USA/USA/19/0111463

PATIENT
  Sex: Male
  Weight: 90 kg

DRUGS (1)
  1. NITROGLYCERIN. [Suspect]
     Active Substance: NITROGLYCERIN
     Indication: CHEST PAIN
     Dosage: PRODUCT STARTED SINCE 20 YEARS
     Route: 060

REACTIONS (3)
  - Product storage error [Unknown]
  - Product use issue [Unknown]
  - Product quality issue [Unknown]
